FAERS Safety Report 21557970 (Version 1)
Quarter: 2022Q4

REPORT INFORMATION
  Report Type: Spontaneous
  Country: US (occurrence: US)
  Receive Date: 20221106
  Receipt Date: 20221106
  Transmission Date: 20230112
  Serious: No
  Sender: FDA-Public Use
  Company Number: US-BAUSCHBL-2022BNL001597

PATIENT
  Sex: Female

DRUGS (2)
  1. LUMIFY [Suspect]
     Active Substance: BRIMONIDINE TARTRATE
     Indication: Ocular hyperaemia
     Dosage: 1 WEEK ON AND OFF ABOUT 3 OR 4 TIMES, 1 DROP IN EACH EYE
     Route: 047
  2. LUMIFY [Suspect]
     Active Substance: BRIMONIDINE TARTRATE

REACTIONS (5)
  - Nausea [Recovered/Resolved]
  - Ocular discomfort [Recovered/Resolved]
  - Headache [Recovered/Resolved]
  - Miosis [Recovered/Resolved]
  - Inappropriate schedule of product administration [Unknown]
